FAERS Safety Report 23336666 (Version 1)
Quarter: 2023Q4

REPORT INFORMATION
  Report Type: Report from Study
  Country: IT (occurrence: IT)
  Receive Date: 20231226
  Receipt Date: 20231226
  Transmission Date: 20240110
  Serious: Yes (Other)
  Sender: FDA-Public Use
  Company Number: IT-JAZZ PHARMACEUTICALS-2023-IT-024972

PATIENT

DRUGS (1)
  1. EPIDIOLEX [Suspect]
     Active Substance: CANNABIDIOL
     Indication: Lennox-Gastaut syndrome
     Dosage: 5 MILLIGRAM/KILOGRAM, QD (7DAYS A WEEK)
     Route: 048
     Dates: start: 202210, end: 202301

REACTIONS (4)
  - Pneumonia [Unknown]
  - Seizure [Unknown]
  - Sedation complication [Unknown]
  - Drug ineffective [Unknown]
